FAERS Safety Report 17902782 (Version 1)
Quarter: 2020Q2

REPORT INFORMATION
  Report Type: Spontaneous
  Country: AU (occurrence: AU)
  Receive Date: 20200616
  Receipt Date: 20200616
  Transmission Date: 20200714
  Serious: Yes (Other)
  Sender: FDA-Public Use
  Company Number: AU-PFIZER INC-2020229358

PATIENT
  Age: 42 Year
  Sex: Female

DRUGS (33)
  1. DIAZEPAM. [Suspect]
     Active Substance: DIAZEPAM
     Dosage: UNK
  2. LORATADINE. [Suspect]
     Active Substance: LORATADINE
     Dosage: UNK
  3. VITAMIN B12 [Suspect]
     Active Substance: CYANOCOBALAMIN
     Dosage: UNK
  4. KEFLEX [Suspect]
     Active Substance: CEPHALEXIN
     Dosage: UNK
  5. AMOXIL [Suspect]
     Active Substance: AMOXICILLIN
     Dosage: UNK
  6. APIDRA [Suspect]
     Active Substance: INSULIN GLULISINE
     Dosage: UNK
  7. PANADEINE FORTE [Suspect]
     Active Substance: ACETAMINOPHEN\CODEINE PHOSPHATE
     Dosage: UNK
  8. TARGIN [Suspect]
     Active Substance: NALOXONE HYDROCHLORIDE\OXYCODONE HYDROCHLORIDE
     Dosage: UNK
  9. NOVORAPID [Suspect]
     Active Substance: INSULIN ASPART
     Dosage: UNK
  10. COLOXYL WITH SENNA [Suspect]
     Active Substance: DOCUSATE SODIUM\SENNOSIDES A AND B
     Dosage: UNK
  11. CLEXANE [Suspect]
     Active Substance: ENOXAPARIN SODIUM
     Dosage: UNK
  12. CYMBALTA [Suspect]
     Active Substance: DULOXETINE HYDROCHLORIDE
     Dosage: UNK
  13. ENDONE [Suspect]
     Active Substance: OXYCODONE HYDROCHLORIDE
     Dosage: UNK
  14. VITAMIN D3 [Suspect]
     Active Substance: CHOLECALCIFEROL
     Dosage: UNK
  15. LEVEMIR [Suspect]
     Active Substance: INSULIN DETEMIR
     Dosage: UNK
  16. FISH OIL [Suspect]
     Active Substance: FISH OIL
     Dosage: UNK
  17. GLUCAGON. [Suspect]
     Active Substance: GLUCAGON
     Dosage: UNK
  18. FENTANYL CITRATE. [Suspect]
     Active Substance: FENTANYL CITRATE
     Dosage: UNK
  19. LYRICA [Suspect]
     Active Substance: PREGABALIN
     Dosage: UNK
  20. ZOLOFT [Suspect]
     Active Substance: SERTRALINE HYDROCHLORIDE
     Dosage: UNK
  21. ESTRADIOL. [Suspect]
     Active Substance: ESTRADIOL
     Dosage: UNK
  22. CEFAZOLIN [Suspect]
     Active Substance: CEFAZOLIN
     Dosage: UNK
  23. FINGOLIMOD. [Suspect]
     Active Substance: FINGOLIMOD
     Dosage: UNK
  24. OXYCODONE [Suspect]
     Active Substance: OXYCODONE
     Dosage: UNK
  25. ACETAMINOPHEN. [Suspect]
     Active Substance: ACETAMINOPHEN
     Dosage: UNK
  26. ASPIRINE [Suspect]
     Active Substance: ASPIRIN
     Dosage: UNK
  27. PROPRANOLOL HYDROCHLORIDE. [Suspect]
     Active Substance: PROPRANOLOL HYDROCHLORIDE
     Dosage: UNK
  28. TECFIDERA [Suspect]
     Active Substance: DIMETHYL FUMARATE
     Dosage: UNK
  29. RAMIPRIL. [Suspect]
     Active Substance: RAMIPRIL
     Dosage: UNK
  30. TRAMADOL HCL [Suspect]
     Active Substance: TRAMADOL HYDROCHLORIDE
     Dosage: UNK
  31. MORPHINE SULFATE. [Suspect]
     Active Substance: MORPHINE SULFATE
     Dosage: UNK
  32. VOLTAREN [Suspect]
     Active Substance: DICLOFENAC SODIUM
     Dosage: UNK
  33. VITAMIN B COMPLEX [BIOTIN;CALCIUM PANTOTHENATE;CYANOCOBALAMIN;FOLIC AC [Suspect]
     Active Substance: BIOTIN\VITAMIN B COMPLEX
     Dosage: UNK

REACTIONS (25)
  - Tinea infection [Unknown]
  - Burning sensation [Unknown]
  - Lymphocyte count decreased [Unknown]
  - Tinea pedis [Unknown]
  - Diabetes mellitus inadequate control [Unknown]
  - Eye haemorrhage [Unknown]
  - Headache [Unknown]
  - Psoriasis [Unknown]
  - Sensory disturbance [Unknown]
  - Diabetic retinopathy [Unknown]
  - Dizziness postural [Unknown]
  - Eye pain [Unknown]
  - Paraesthesia [Unknown]
  - Thermal burn [Unknown]
  - Cystoid macular oedema [Unknown]
  - Episcleritis [Unknown]
  - Multiple lentigines syndrome [Unknown]
  - Cataract subcapsular [Unknown]
  - Fatigue [Unknown]
  - Vision blurred [Unknown]
  - Macular oedema [Unknown]
  - Alanine aminotransferase increased [Unknown]
  - Dizziness [Unknown]
  - Gamma-glutamyltransferase increased [Unknown]
  - Skin burning sensation [Unknown]
